FAERS Safety Report 21243592 (Version 2)
Quarter: 2022Q3

REPORT INFORMATION
  Report Type: Other
  Country: US (occurrence: None)
  Receive Date: 20220823
  Receipt Date: 20220824
  Transmission Date: 20221027
  Serious: No
  Sender: FDA-Public Use
  Company Number: US-ROCHE-2209292

PATIENT
  Sex: Male
  Weight: 88.984 kg

DRUGS (2)
  1. RITUXAN [Suspect]
     Active Substance: RITUXIMAB
     Indication: Relapsing multiple sclerosis
     Dosage: 4 INFUSIONS OVER A MONTH?DATE OF TREATMENT: 25/FEB/2019
     Route: 042
  2. RITUXAN [Suspect]
     Active Substance: RITUXIMAB
     Indication: Immune thrombocytopenia

REACTIONS (2)
  - Platelet count increased [Not Recovered/Not Resolved]
  - Off label use [Unknown]
